FAERS Safety Report 9338092 (Version 1)
Quarter: 2013Q2

REPORT INFORMATION
  Report Type: Spontaneous
  Country: US (occurrence: US)
  Receive Date: 20130610
  Receipt Date: 20130610
  Transmission Date: 20140414
  Serious: No
  Sender: FDA-Public Use
  Company Number: US-009507513-1305USA015344

PATIENT
  Age: 38 Year
  Sex: Female

DRUGS (1)
  1. MAXALT MLT [Suspect]
     Indication: MIGRAINE
     Dosage: 10MG ONCE A DAY
     Route: 060

REACTIONS (4)
  - Dizziness [Unknown]
  - Nausea [Unknown]
  - Somnolence [Unknown]
  - Incorrect route of drug administration [Unknown]
